FAERS Safety Report 6357199-X (Version None)
Quarter: 2009Q3

REPORT INFORMATION
  Report Type: 
  Country: None (occurrence: None)
  Receive Date: 20090911
  Receipt Date: 20090828
  Transmission Date: 20100115
  Serious: Yes (Hospitalization, Disabling, Other)
  Sender: FDA-Public Use
  Company Number: A-US2009-24268

PATIENT
  Age: 34 Year
  Sex: Female

DRUGS (1)
  1. TRACLEER [Suspect]
     Indication: PULMONARY ARTERIAL HYPERTENSION
     Dosage: MG, ORAL
     Route: 048
     Dates: start: 20060101, end: 20081101

REACTIONS (6)
  - ANAEMIA [None]
  - ARTHRALGIA [None]
  - BLOOD COUNT ABNORMAL [None]
  - MYOSITIS [None]
  - OROPHARYNGEAL PAIN [None]
  - OSTEONECROSIS [None]
